FAERS Safety Report 8094251-5 (Version None)
Quarter: 2012Q1

REPORT INFORMATION
  Report Type: 
  Country: None (occurrence: None)
  Receive Date: 20120131
  Receipt Date: 20120124
  Transmission Date: 20120608
  Serious: Yes (Other)
  Sender: FDA-Public Use
  Company Number: JP-PFIZER INC-2012020233

PATIENT
  Age: 84 Year
  Sex: Female

DRUGS (2)
  1. MIGLITOL [Suspect]
     Indication: DIABETES MELLITUS
     Dosage: 25 MG, 3X/DAY
     Route: 048
     Dates: start: 20111008, end: 20111222
  2. GALANTAMINE HYDROBROMIDE [Concomitant]
     Dosage: UNK
     Dates: start: 20111201

REACTIONS (1)
  - LIVER DISORDER [None]
